FAERS Safety Report 20190498 (Version 2)
Quarter: 2022Q1

REPORT INFORMATION
  Report Type: Spontaneous
  Country: US (occurrence: US)
  Receive Date: 20211215
  Receipt Date: 20220128
  Transmission Date: 20220424
  Serious: No
  Sender: FDA-Public Use
  Company Number: US-SA-SAC20211210000365

PATIENT
  Age: 58 Year
  Sex: Male

DRUGS (21)
  1. FABRAZYME [Suspect]
     Active Substance: AGALSIDASE BETA
     Indication: Fabry^s disease
     Dosage: 80 MG, QOW
     Route: 041
     Dates: start: 20170202
  2. FABRAZYME [Suspect]
     Active Substance: AGALSIDASE BETA
     Indication: Pulmonary arterial hypertension
  3. FABRAZYME [Suspect]
     Active Substance: AGALSIDASE BETA
     Indication: Lipidosis
  4. STERILE WATER [Concomitant]
     Active Substance: WATER
  5. EPINEPHRINE [Concomitant]
     Active Substance: EPINEPHRINE
  6. NITROGLYCERIN [Concomitant]
     Active Substance: NITROGLYCERIN
  7. ACETAMINOPHEN [Concomitant]
     Active Substance: ACETAMINOPHEN
  8. FINASTERIDE [Concomitant]
     Active Substance: FINASTERIDE
  9. MIRALAX [Concomitant]
     Active Substance: POLYETHYLENE GLYCOL 3350
  10. AMITRIPTYLINE [Concomitant]
     Active Substance: AMITRIPTYLINE
  11. VITAMIN D3 [Concomitant]
     Active Substance: CHOLECALCIFEROL
  12. CALCIUM [Concomitant]
     Active Substance: CALCIUM
  13. CIALIS [Concomitant]
     Active Substance: TADALAFIL
  14. ASPIRIN [Concomitant]
     Active Substance: ASPIRIN
  15. ASPIRIN [Concomitant]
     Active Substance: ASPIRIN
  16. LOSARTAN [Concomitant]
     Active Substance: LOSARTAN
  17. STOOL SOFTENER (DOCUSATE) [Concomitant]
     Active Substance: DOCUSATE
  18. VITAMINS NOS [Concomitant]
     Active Substance: VITAMINS
  19. SODIUM CHLORIDE [Concomitant]
     Active Substance: SODIUM CHLORIDE
  20. SODIUM CHLORIDE [Concomitant]
     Active Substance: SODIUM CHLORIDE
  21. MAGNESIUM [Concomitant]
     Active Substance: MAGNESIUM

REACTIONS (3)
  - Headache [Unknown]
  - Cough [Unknown]
  - Product use in unapproved indication [Unknown]
